FAERS Safety Report 7639249-3 (Version None)
Quarter: 2011Q3

REPORT INFORMATION
  Report Type: 
  Country: None (occurrence: None)
  Receive Date: 20110727
  Receipt Date: 20110725
  Transmission Date: 20111222
  Serious: Yes (Hospitalization)
  Sender: FDA-Public Use
  Company Number: IT-MERCK-1107ITA00013

PATIENT
  Age: 80 Year
  Sex: Female

DRUGS (6)
  1. SINEMET [Suspect]
     Indication: PARKINSON'S DISEASE
     Route: 048
     Dates: start: 20110615, end: 20110704
  2. CLOZAPINE [Suspect]
     Route: 048
     Dates: start: 20110615
  3. SINEMET [Suspect]
     Route: 048
     Dates: start: 20110701
  4. CLONAZEPAM [Concomitant]
     Route: 065
  5. WARFARIN SODIUM [Concomitant]
     Route: 065
  6. ROPINIROLE HYDROCHLORIDE [Concomitant]
     Route: 065

REACTIONS (3)
  - DYSKINESIA [None]
  - AKATHISIA [None]
  - HYPERKINESIA [None]
